FAERS Safety Report 5856948-4 (Version None)
Quarter: 2008Q3

REPORT INFORMATION
  Report Type: 
  Country: None (occurrence: None)
  Receive Date: 20080822
  Receipt Date: 20080822
  Transmission Date: 20090109
  Serious: No
  Sender: FDA-Public Use
  Company Number: None

PATIENT
  Age: 47 Year
  Sex: Female
  Weight: 63.05 kg

DRUGS (1)
  1. IPRATROPIUM BROMIDE [Suspect]
     Indication: RHINITIS
     Dosage: 2SP. EA NOSTRIL 1-2 X/D NASAL
     Route: 045
     Dates: start: 20040101, end: 20080101

REACTIONS (4)
  - DYSKINESIA [None]
  - INTRAOCULAR PRESSURE INCREASED [None]
  - MUSCLE TWITCHING [None]
  - PHARMACEUTICAL PRODUCT COMPLAINT [None]
